FAERS Safety Report 18480638 (Version 1)
Quarter: 2020Q4

REPORT INFORMATION
  Report Type: Report from Study
  Country: KR (occurrence: KR)
  Receive Date: 20201109
  Receipt Date: 20201109
  Transmission Date: 20210114
  Serious: Yes (Other)
  Sender: FDA-Public Use
  Company Number: KR-OTSUKA-2020_027222

PATIENT
  Age: 64 Year
  Sex: Male

DRUGS (11)
  1. TOLVAPTAN [Suspect]
     Active Substance: TOLVAPTAN
     Indication: CONGENITAL CYSTIC KIDNEY DISEASE
     Dosage: 45 MG, QD
     Route: 048
     Dates: start: 20200706, end: 20200719
  2. TWYNSTA [Concomitant]
     Active Substance: AMLODIPINE BESYLATE\TELMISARTAN
     Indication: HYPERTENSION
     Dosage: 1 DF, QD
     Route: 048
     Dates: start: 20200803
  3. TOLVAPTAN [Suspect]
     Active Substance: TOLVAPTAN
     Dosage: 15 MG, QD
     Route: 048
     Dates: start: 20200706, end: 20200719
  4. TOLVAPTAN [Suspect]
     Active Substance: TOLVAPTAN
     Dosage: 45 MG, QD
     Route: 048
     Dates: start: 20201019, end: 20201019
  5. ROSUZET COMPOSITE PACK [Concomitant]
     Active Substance: EZETIMIBE\ROSUVASTATIN
     Indication: TYPE V HYPERLIPIDAEMIA
     Dosage: 1 DF, QD
     Route: 048
     Dates: start: 20190703
  6. TWYNSTA [Concomitant]
     Active Substance: AMLODIPINE BESYLATE\TELMISARTAN
     Indication: CONGENITAL CYSTIC KIDNEY DISEASE
  7. TOLVAPTAN [Suspect]
     Active Substance: TOLVAPTAN
     Dosage: 15 MG, QD
     Route: 048
     Dates: start: 20201019, end: 20201019
  8. TOLVAPTAN [Suspect]
     Active Substance: TOLVAPTAN
     Dosage: 15 MG, QD
     Route: 048
     Dates: start: 20200927, end: 20200927
  9. FEBURIC [Concomitant]
     Active Substance: FEBUXOSTAT
     Indication: GOUT
     Dosage: 40 MG, QD
     Route: 048
     Dates: start: 20180604
  10. TOLVAPTAN [Suspect]
     Active Substance: TOLVAPTAN
     Dosage: 15 MG, QD
     Route: 048
     Dates: start: 20200927, end: 20200927
  11. PREGREL [Concomitant]
     Indication: PERIPHERAL VASCULAR DISORDER
     Dosage: 75 MG, QD
     Route: 048
     Dates: start: 20200102

REACTIONS (1)
  - Asthenia [Recovered/Resolved]

NARRATIVE: CASE EVENT DATE: 202010
